FAERS Safety Report 8271012 (Version 3)
Quarter: 2013Q2

REPORT INFORMATION
  Report Type: Report from Study
  Country: IT (occurrence: IT)
  Receive Date: 20111201
  Receipt Date: 20130409
  Transmission Date: 20140414
  Serious: Yes (Death, Hospitalization)
  Sender: FDA-Public Use
  Company Number: IT-CELGENEUS-083-21880-11113563

PATIENT
  Sex: Female

DRUGS (2)
  1. REVLIMID [Suspect]
     Indication: LYMPHOMA
     Dosage: 25 MILLIGRAM
     Route: 048
     Dates: start: 20081006, end: 20081022
  2. DEXAMETHASONE [Concomitant]
     Indication: LYMPHOMA
     Route: 065

REACTIONS (4)
  - Candida pneumonia [Recovered/Resolved]
  - Soft tissue infection [Recovered/Resolved]
  - Campylobacter gastroenteritis [Recovered/Resolved]
  - Lymphoma [Fatal]
